FAERS Safety Report 6831955-3 (Version None)
Quarter: 2010Q3

REPORT INFORMATION
  Report Type: 
  Country: None (occurrence: None)
  Receive Date: 20100712
  Receipt Date: 20100705
  Transmission Date: 20110219
  Serious: Yes (Other)
  Sender: FDA-Public Use
  Company Number: BR-ROCHE-701620

PATIENT
  Sex: Male
  Weight: 85 kg

DRUGS (1)
  1. ROACUTAN [Suspect]
     Indication: PRODUCT USED FOR UNKNOWN INDICATION
     Dosage: 3 CAPSULES DAILY AT NIGHT
     Route: 065
     Dates: start: 20090601, end: 20091101

REACTIONS (2)
  - BARRETT'S OESOPHAGUS [None]
  - OESOPHAGITIS [None]
